FAERS Safety Report 8942171 (Version 5)
Quarter: 2013Q2

REPORT INFORMATION
  Report Type: Spontaneous
  Country: US (occurrence: US)
  Receive Date: 20121203
  Receipt Date: 20130523
  Transmission Date: 20140414
  Serious: No
  Sender: FDA-Public Use
  Company Number: US-009507513-1211USA011954

PATIENT
  Sex: Female

DRUGS (1)
  1. IMPLANON [Suspect]
     Dosage: UNK
     Dates: start: 20111024

REACTIONS (5)
  - Weight increased [Unknown]
  - Metrorrhagia [Unknown]
  - Implant site inflammation [Recovered/Resolved]
  - Medical device complication [Unknown]
  - Complication of device removal [Unknown]
